FAERS Safety Report 4276892-6 (Version None)
Quarter: 2004Q1

REPORT INFORMATION
  Report Type: 
  Country: None (occurrence: None)
  Receive Date: 20040120
  Receipt Date: 20040112
  Transmission Date: 20041129
  Serious: No
  Sender: FDA-Public Use
  Company Number: 04H-062-0246879-00

PATIENT
  Sex: Female

DRUGS (3)
  1. DOPAMINE HCL [Suspect]
     Indication: HYPOTENSION
     Dosage: 5MCG/KG-1/MIN-1,
  2. EPINEPHRINE [Suspect]
     Indication: HYPOTENSION
     Dosage: 0.8MCG/KG-1/MIN--1,
  3. PROSTAGLANDIN INHIBITORS [Concomitant]

REACTIONS (1)
  - CARDIAC FAILURE [None]
